FAERS Safety Report 9133781 (Version 1)
Quarter: 2013Q1

REPORT INFORMATION
  Report Type: Spontaneous
  Country: US (occurrence: US)
  Receive Date: 20130303
  Receipt Date: 20130303
  Transmission Date: 20140127
  Serious: No
  Sender: FDA-Public Use
  Company Number: US-TEVA-389133USA

PATIENT
  Age: 70 Year
  Sex: Female
  Weight: 77.18 kg

DRUGS (5)
  1. PROAIR HFA [Suspect]
     Dosage: Q6H
     Route: 055
     Dates: start: 20130225
  2. TRICOR [Concomitant]
     Indication: HYPERLIPIDAEMIA
     Dosage: 180 MILLIGRAM DAILY;
     Route: 048
  3. LISINOPRIL [Concomitant]
     Indication: HYPERTENSION
     Dosage: 5 MILLIGRAM DAILY;
     Route: 048
  4. JENUVIA [Concomitant]
     Indication: DIABETES MELLITUS
     Dosage: 10 GRAM DAILY;
     Route: 048
  5. TRAVASTAN [Concomitant]
     Indication: GLAUCOMA
     Dosage: 2 GTT DAILY;
     Route: 031

REACTIONS (1)
  - Nausea [Recovered/Resolved]
